FAERS Safety Report 18914985 (Version 1)
Quarter: 2021Q1

REPORT INFORMATION
  Report Type: Spontaneous
  Country: US (occurrence: US)
  Receive Date: 20210218
  Receipt Date: 20210218
  Transmission Date: 20210420
  Serious: Yes (Hospitalization, Disabling)
  Sender: FDA-Public Use
  Company Number: None

PATIENT
  Age: 33 Year
  Sex: Female
  Weight: 85.5 kg

DRUGS (2)
  1. AMMOXICILIAN [Concomitant]
  2. LEVOFLOXACIN 500MG TABLETS [Suspect]
     Active Substance: LEVOFLOXACIN
     Indication: URINARY TRACT INFECTION
     Dosage: ?          QUANTITY:7 TABLET(S);?
     Route: 048
     Dates: start: 20210119, end: 20210120

REACTIONS (15)
  - Anxiety [None]
  - Panic attack [None]
  - Rash [None]
  - Feeling abnormal [None]
  - Food allergy [None]
  - Paraesthesia [None]
  - Intervertebral disc protrusion [None]
  - Respiration abnormal [None]
  - Urinary incontinence [None]
  - Tendon pain [None]
  - Burning sensation [None]
  - Nerve injury [None]
  - Dizziness [None]
  - Red blood cell sedimentation rate increased [None]
  - Fatigue [None]

NARRATIVE: CASE EVENT DATE: 20210119
